FAERS Safety Report 8554101-7 (Version None)
Quarter: 2012Q3

REPORT INFORMATION
  Report Type: 
  Country: None (occurrence: None)
  Receive Date: 20120731
  Receipt Date: 20120725
  Transmission Date: 20120928
  Serious: Yes (Congenital Anomaly, Other)
  Sender: FDA-Public Use
  Company Number: PHHY2012IN064775

PATIENT
  Sex: Female

DRUGS (1)
  1. CARBAMAZEPINE [Suspect]
     Dosage: 200 MG, DAILY

REACTIONS (9)
  - ABDOMINAL DISTENSION [None]
  - INTESTINAL OBSTRUCTION [None]
  - INTESTINAL PERFORATION [None]
  - LOW BIRTH WEIGHT BABY [None]
  - ILEAL ATRESIA [None]
  - FOETAL EXPOSURE DURING PREGNANCY [None]
  - PSEUDOCYST [None]
  - INTUSSUSCEPTION [None]
  - PREMATURE BABY [None]
